FAERS Safety Report 11419706 (Version 1)
Quarter: 2015Q3

REPORT INFORMATION
  Report Type: Report from Study
  Country: US (occurrence: US)
  Receive Date: 20150826
  Receipt Date: 20150826
  Transmission Date: 20151125
  Serious: Yes (Hospitalization)
  Sender: FDA-Public Use
  Company Number: US-UNITED THERAPEUTICS LTD.-UTC-012018

PATIENT
  Age: 73 Year
  Sex: Female
  Weight: 69.5 kg

DRUGS (14)
  1. PLAVIX [Concomitant]
     Active Substance: CLOPIDOGREL BISULFATE
     Indication: PULMONARY ARTERIAL HYPERTENSION
     Dates: start: 2008
  2. UT-15C SR(SUSTAINED-RELEASE TABLET)(TREPROSTINIL DIETHANOLAMINE) [Suspect]
     Active Substance: TREPROSTINIL
     Route: 048
     Dates: start: 20100927
  3. LEVOTHYROXINE. [Concomitant]
     Active Substance: LEVOTHYROXINE
     Indication: HYPOTHYROIDISM
     Dates: start: 1995
  4. FERROUS SULFATE [Concomitant]
     Active Substance: FERROUS SULFATE\FERROUS SULFATE, DRIED
     Indication: SUPPLEMENTATION THERAPY
     Dates: start: 2005
  5. LYSINE [Concomitant]
     Active Substance: LYSINE
     Indication: GASTRIC PH DECREASED
     Dates: start: 20090115
  6. OXYCONTIN [Concomitant]
     Active Substance: OXYCODONE HYDROCHLORIDE
     Indication: PAIN IN EXTREMITY
     Dates: start: 2005, end: 20110111
  7. LANSOPRAZOLE. [Concomitant]
     Active Substance: LANSOPRAZOLE
     Indication: ABDOMINAL DISCOMFORT
     Dates: start: 201102
  8. UT-15C SR(SUSTAINED-RELEASE TABLET)(TREPROSTINIL DIETHANOLAMINE) [Suspect]
     Active Substance: TREPROSTINIL
     Indication: PULMONARY ARTERIAL HYPERTENSION
     Route: 048
     Dates: start: 20100927
  9. SILDENAFIL CITRATE. [Concomitant]
     Active Substance: SILDENAFIL CITRATE
     Indication: PULMONARY ARTERIAL HYPERTENSION
     Dates: start: 2006
  10. K-LOR CON [Concomitant]
     Indication: BLOOD POTASSIUM DECREASED
     Dates: start: 2006
  11. TRAMADOL. [Concomitant]
     Active Substance: TRAMADOL
     Indication: PAIN IN EXTREMITY
     Dates: start: 2005
  12. TYLENOL PM [Concomitant]
     Active Substance: ACETAMINOPHEN\DIPHENHYDRAMINE
     Indication: INSOMNIA
     Dates: start: 200610
  13. FOLIC ACID. [Concomitant]
     Active Substance: FOLIC ACID
     Indication: SUPPLEMENTATION THERAPY
     Dates: start: 200911
  14. OXYCONTIN [Concomitant]
     Active Substance: OXYCODONE HYDROCHLORIDE
     Dates: start: 20110112

REACTIONS (1)
  - Acute kidney injury [Recovered/Resolved]

NARRATIVE: CASE EVENT DATE: 20111103
